FAERS Safety Report 13316003 (Version 2)
Quarter: 2017Q1

REPORT INFORMATION
  Report Type: Report from Study
  Country: None (occurrence: US)
  Receive Date: 20170309
  Receipt Date: 20170309
  Transmission Date: 20170428
  Serious: Yes (Hospitalization, Other)
  Sender: FDA-Public Use
  Company Number: US-ABBVIE-17K-163-1853579-00

PATIENT
  Age: 24 Year
  Sex: Female
  Weight: 68.55 kg

DRUGS (1)
  1. HUMIRA [Suspect]
     Active Substance: ADALIMUMAB
     Indication: HIDRADENITIS
     Route: 058
     Dates: start: 20161126, end: 201612

REACTIONS (7)
  - Abortion spontaneous [Recovering/Resolving]
  - Fall [Recovered/Resolved]
  - Foetal death [Unknown]
  - Nasopharyngitis [Recovered/Resolved]
  - Immunodeficiency [Recovered/Resolved]
  - Exposure during pregnancy [Unknown]
  - Upper limb fracture [Recovering/Resolving]

NARRATIVE: CASE EVENT DATE: 201612
